FAERS Safety Report 25320927 (Version 1)
Quarter: 2025Q2

REPORT INFORMATION
  Report Type: Spontaneous
  Country: US (occurrence: US)
  Receive Date: 20250515
  Receipt Date: 20250515
  Transmission Date: 20250716
  Serious: No
  Sender: SANOFI AVENTIS
  Company Number: US-SA-2025SA137417

PATIENT
  Age: 63 Year
  Sex: Female

DRUGS (1)
  1. KEVZARA [Suspect]
     Active Substance: SARILUMAB
     Indication: Connective tissue disease-associated interstitial lung disease
     Dosage: 200 MG, QOW
     Route: 058

REACTIONS (2)
  - Rash [Unknown]
  - Product use in unapproved indication [Unknown]
